FAERS Safety Report 8606441-0 (Version None)
Quarter: 2012Q3

REPORT INFORMATION
  Report Type: 
  Country: None (occurrence: None)
  Receive Date: 20120820
  Receipt Date: 20120814
  Transmission Date: 20120928
  Serious: No
  Sender: FDA-Public Use
  Company Number: US-PFIZER INC-2012199450

PATIENT
  Age: 63 Year
  Sex: Female
  Weight: 64.399 kg

DRUGS (4)
  1. ESTRING [Suspect]
     Indication: MENOPAUSAL DISORDER
     Dosage: UNK, EVERY THREE MONTHS
     Route: 067
     Dates: end: 20120810
  2. ESTRING [Suspect]
     Indication: VULVOVAGINAL DRYNESS
  3. MULTI-VITAMINS [Concomitant]
     Dosage: UNK,DAILY
  4. FISH OIL [Concomitant]
     Indication: CARDIOVASCULAR EVENT PROPHYLAXIS
     Dosage: UNK

REACTIONS (4)
  - ERYTHEMA [None]
  - PERINEAL PAIN [None]
  - PAIN [None]
  - PRODUCT QUALITY ISSUE [None]
